FAERS Safety Report 17816041 (Version 2)
Quarter: 2020Q3

REPORT INFORMATION
  Report Type: Spontaneous
  Country: JP (occurrence: JP)
  Receive Date: 20200522
  Receipt Date: 20200709
  Transmission Date: 20201102
  Serious: Yes (Hospitalization, Other)
  Sender: FDA-Public Use
  Company Number: JP-ASTRAZENECA-2020SE65023

PATIENT
  Age: 63 Year
  Sex: Female
  Weight: 42 kg

DRUGS (4)
  1. TAGRISSO [Suspect]
     Active Substance: OSIMERTINIB
     Indication: NON-SMALL CELL LUNG CANCER
     Route: 048
     Dates: start: 20181225, end: 20200515
  2. HIRUDOID [Concomitant]
     Active Substance: GLYCOSAMINOGLYCANS
     Indication: PROPHYLAXIS
     Dosage: NUMBER OF SEPARATE DOSAGES UNKNOWN
     Route: 062
     Dates: start: 20181222
  3. LOCOID [Concomitant]
     Active Substance: HYDROCORTISONE BUTYRATE
     Indication: PROPHYLAXIS
     Dosage: NUMBER OF SEPARATE DOSAGES UNKNOWN
     Route: 062
     Dates: start: 20190115
  4. LUNESTA [Concomitant]
     Active Substance: ESZOPICLONE
     Route: 048
     Dates: start: 20181129, end: 20190202

REACTIONS (1)
  - Cardiac failure [Unknown]

NARRATIVE: CASE EVENT DATE: 20200513
